FAERS Safety Report 21802434 (Version 1)
Quarter: 2022Q4

REPORT INFORMATION
  Report Type: Spontaneous
  Country: NL (occurrence: NL)
  Receive Date: 20221231
  Receipt Date: 20221231
  Transmission Date: 20230113
  Serious: Yes (Hospitalization, Other)
  Sender: FDA-Public Use
  Company Number: NL-LRB-00857216

PATIENT
  Sex: Female
  Weight: 73 kg

DRUGS (1)
  1. HYDROCHLOROTHIAZIDE [Suspect]
     Active Substance: HYDROCHLOROTHIAZIDE
     Indication: Hypertension
     Dosage: 25 MILLIGRAM, ONCE A DAY(1 X PER DAY 1 PIECE)
     Route: 048
     Dates: start: 20170822, end: 20180731

REACTIONS (1)
  - Hypokalaemia [Recovered/Resolved]
